FAERS Safety Report 13656144 (Version 2)
Quarter: 2017Q3

REPORT INFORMATION
  Report Type: Spontaneous
  Country: US (occurrence: US)
  Receive Date: 20170615
  Receipt Date: 20170728
  Transmission Date: 20171127
  Serious: Yes (Other)
  Sender: FDA-Public Use
  Company Number: US-PFIZER INC-2017256635

PATIENT
  Sex: Female
  Weight: 62.14 kg

DRUGS (2)
  1. NICOTROL [Suspect]
     Active Substance: NICOTINE
     Indication: SMOKING CESSATION THERAPY
     Dosage: 10MG, 4MG DELIVERED; 2-3 PUFFS WHENEVER THE URGE HIT FOR A CIGARETTE
  2. NICOTROL [Suspect]
     Active Substance: NICOTINE
     Dosage: 10MG, 4MG DELIVERED
     Dates: start: 2017, end: 2017

REACTIONS (3)
  - Expired product administered [Unknown]
  - Product taste abnormal [Unknown]
  - Myocardial infarction [Unknown]

NARRATIVE: CASE EVENT DATE: 2017
